FAERS Safety Report 11437332 (Version 1)
Quarter: 2015Q3

REPORT INFORMATION
  Report Type: Spontaneous
  Country: US (occurrence: US)
  Receive Date: 20150821
  Receipt Date: 20150821
  Transmission Date: 20151125
  Serious: No
  Sender: FDA-Public Use
  Company Number: US-ELI_LILLY_AND_COMPANY-US200704002050

PATIENT
  Sex: Male

DRUGS (7)
  1. CYMBALTA [Suspect]
     Active Substance: DULOXETINE HYDROCHLORIDE
     Indication: GENERALISED ANXIETY DISORDER
     Dosage: 60 MG, DAILY (1/D)
     Route: 048
     Dates: start: 200701
  2. CLA [Concomitant]
  3. EFFEXOR [Interacting]
     Active Substance: VENLAFAXINE HYDROCHLORIDE
  4. ZOLOFT [Concomitant]
     Active Substance: SERTRALINE HYDROCHLORIDE
  5. LIPITOR [Interacting]
     Active Substance: ATORVASTATIN CALCIUM
     Dosage: 10 MG, UNK
  6. GINKO BILOBA [Interacting]
     Active Substance: GINKGO
  7. MULTIVITAMINS [Concomitant]
     Active Substance: VITAMINS

REACTIONS (2)
  - Drug interaction [Not Recovered/Not Resolved]
  - Paraesthesia [Not Recovered/Not Resolved]
